FAERS Safety Report 9068697 (Version 2)
Quarter: 2013Q1

REPORT INFORMATION
  Report Type: Spontaneous
  Country: BR (occurrence: BR)
  Receive Date: 20130215
  Receipt Date: 20130322
  Transmission Date: 20140127
  Serious: Yes (Hospitalization, Other)
  Sender: FDA-Public Use
  Company Number: BR-ABBOTT-13P-020-1048199-00

PATIENT
  Sex: Female
  Weight: 58 kg

DRUGS (7)
  1. DEPAKOTE ER [Suspect]
     Indication: BIPOLAR DISORDER
     Dosage: IN THE MORNING
     Route: 048
     Dates: start: 2011
  2. CALCIUM D [Concomitant]
     Indication: OSTEOPENIA
     Route: 048
     Dates: start: 2009
  3. ARTROLIVE [Concomitant]
     Indication: ARTHROPATHY
     Route: 048
     Dates: start: 2009
  4. SUPRADYN [Concomitant]
     Indication: VITAMIN SUPPLEMENTATION
     Route: 048
     Dates: start: 2008
  5. PANTOPRAZOLE SODIUM [Concomitant]
     Indication: PROPHYLAXIS
     Dosage: IN THE MORNING
     Route: 048
     Dates: start: 2008
  6. PANTOPRAZOLE SODIUM [Concomitant]
     Indication: GASTROINTESTINAL MUCOSAL DISORDER
  7. ESCITALOPRAM OXALATE [Concomitant]
     Indication: DEPRESSION
     Dates: start: 2003

REACTIONS (7)
  - Knee arthroplasty [Unknown]
  - Nosocomial infection [Recovered/Resolved]
  - Arthralgia [Not Recovered/Not Resolved]
  - Osteopenia [Not Recovered/Not Resolved]
  - Anaemia [Not Recovered/Not Resolved]
  - Immunodeficiency [Not Recovered/Not Resolved]
  - Haemorrhage [Unknown]
